FAERS Safety Report 15355481 (Version 1)
Quarter: 2018Q4

REPORT INFORMATION
  Report Type: Spontaneous
  Country: AU (occurrence: AU)
  Receive Date: 20180906
  Receipt Date: 20180906
  Transmission Date: 20190204
  Serious: Yes (Other)
  Sender: FDA-Public Use
  Company Number: AU-TEVA-2018-AU-950610

PATIENT
  Sex: Female

DRUGS (1)
  1. FOSETIC [Suspect]
     Active Substance: FOSINOPRIL\HYDROCHLOROTHIAZIDE
     Indication: BLOOD PRESSURE ABNORMAL
     Route: 048

REACTIONS (4)
  - Product substitution issue [Unknown]
  - Choking [Unknown]
  - Product physical issue [Unknown]
  - Product use complaint [Unknown]
